FAERS Safety Report 8179549-4 (Version None)
Quarter: 2012Q1

REPORT INFORMATION
  Report Type: 
  Country: None (occurrence: None)
  Receive Date: 20120302
  Receipt Date: 20120228
  Transmission Date: 20120608
  Serious: No
  Sender: FDA-Public Use
  Company Number: US-PFIZER INC-2012053439

PATIENT
  Sex: Female
  Weight: 59 kg

DRUGS (1)
  1. CHANTIX [Suspect]
     Indication: SMOKING CESSATION THERAPY
     Dosage: 0.5 MG, DAILY
     Dates: start: 20120201, end: 20120209

REACTIONS (5)
  - MYALGIA [None]
  - NAUSEA [None]
  - DRUG INTOLERANCE [None]
  - MALAISE [None]
  - ARTHRALGIA [None]
